FAERS Safety Report 5768018-4 (Version None)
Quarter: 2008Q2

REPORT INFORMATION
  Report Type: 
  Country: None (occurrence: None)
  Receive Date: 20080601
  Receipt Date: 20080311
  Transmission Date: 20081010
  Serious: No
  Sender: FDA-Public Use
  Company Number: US200803002550

PATIENT
  Age: 73 Year
  Sex: Male

DRUGS (7)
  1. BYETTA [Suspect]
     Indication: TYPE 2 DIABETES MELLITUS
     Dosage: 5, 2/D, SUBCUTANEOUS
     Route: 058
     Dates: start: 20080307
  2. INSULIN HUMALOG MIX (INSULIN LISPRO, ISOPHANE INSULIN) [Concomitant]
  3. METFORMIN HCL [Concomitant]
  4. AVANDIA [Concomitant]
  5. SIMVASTATIN [Concomitant]
  6. DIOVAN (HYDROCHLOROTHIAZIDE, VALSARTAN) [Concomitant]
  7. CLONIDINE [Concomitant]

REACTIONS (2)
  - HYPOGLYCAEMIA [None]
  - NAUSEA [None]
